FAERS Safety Report 6522094-X (Version None)
Quarter: 2009Q4

REPORT INFORMATION
  Report Type: 
  Country: None (occurrence: None)
  Receive Date: 20091229
  Receipt Date: 20091229
  Transmission Date: 20100525
  Serious: Yes (Hospitalization)
  Sender: FDA-Public Use
  Company Number: None

PATIENT
  Sex: Male
  Weight: 64.4 kg

DRUGS (18)
  1. GLARGINE INSULIN [Suspect]
     Indication: HYPERGLYCAEMIA
     Dosage: 21 UNITS SQ QHS
     Dates: start: 20091019, end: 20091020
  2. ASPART INSULIN [Suspect]
     Indication: HYPERGLYCAEMIA
     Dosage: 6 UNITS SQ TID AC
     Dates: start: 20091019, end: 20091020
  3. APAP TAB [Concomitant]
  4. AMIODARONE HCL [Concomitant]
  5. BISACODYL [Concomitant]
  6. CEFEPIME [Concomitant]
  7. CETIRIZINE [Concomitant]
  8. DILTIAZEM [Concomitant]
  9. DIPHENHYDRAMINE DOCUSATE [Concomitant]
  10. GUAIFENESIN [Concomitant]
  11. HYDROMORPHONE [Concomitant]
  12. MIGESTRAL [Concomitant]
  13. MORPHINE [Concomitant]
  14. NYSTATIN [Concomitant]
  15. PREDNISONE [Concomitant]
  16. PROCHLORAPRAZINE [Concomitant]
  17. RANITIDINE [Concomitant]
  18. SENNA [Concomitant]

REACTIONS (3)
  - BLOOD GLUCOSE DECREASED [None]
  - BLOOD GLUCOSE INCREASED [None]
  - NIGHT SWEATS [None]
